FAERS Safety Report 14681190 (Version 2)
Quarter: 2020Q3

REPORT INFORMATION
  Report Type: Report from Study
  Country: CA (occurrence: CA)
  Receive Date: 20180326
  Receipt Date: 20180328
  Transmission Date: 20201105
  Serious: Yes (Hospitalization)
  Sender: FDA-Public Use
  Company Number: CA-ASTRAZENECA-2018SE34049

PATIENT
  Age: 69 Year
  Sex: Female

DRUGS (31)
  1. PEMETREXED. [Suspect]
     Active Substance: PEMETREXED
     Indication: NON-SMALL CELL LUNG CANCER
     Route: 042
     Dates: start: 20160930, end: 20180305
  2. CISPLATIN. [Suspect]
     Active Substance: CISPLATIN
     Indication: NON-SMALL CELL LUNG CANCER
     Route: 042
     Dates: start: 20160930, end: 20170117
  3. TYLENOL EXTRA STRENGTH [Concomitant]
     Active Substance: ACETAMINOPHEN
     Dates: start: 201606
  4. METOCLOPRAMIDE. [Concomitant]
     Active Substance: METOCLOPRAMIDE
     Dates: start: 20160923
  5. OLANZAPINE. [Concomitant]
     Active Substance: OLANZAPINE
     Dates: start: 20171030
  6. PANTOLOC [Concomitant]
     Active Substance: PANTOPRAZOLE SODIUM
     Dates: start: 20170207
  7. DURVALUMAB. [Suspect]
     Active Substance: DURVALUMAB
     Indication: NON-SMALL CELL LUNG CANCER
     Route: 042
     Dates: start: 20160930, end: 20170309
  8. TREMELIMUMAB. [Suspect]
     Active Substance: TREMELIMUMAB
     Indication: NON-SMALL CELL LUNG CANCER
     Route: 042
     Dates: start: 20160930, end: 20170309
  9. CRESTOR [Concomitant]
     Active Substance: ROSUVASTATIN CALCIUM
     Dates: start: 2006
  10. RESTORALAX [Concomitant]
     Active Substance: POLYETHYLENE GLYCOL 3350
     Dates: start: 2016
  11. SENOKOT [Concomitant]
     Active Substance: SENNOSIDES
     Dates: start: 20160920
  12. FOLIC ACID. [Concomitant]
     Active Substance: FOLIC ACID
     Dates: start: 20160921
  13. LACTULOSE. [Concomitant]
     Active Substance: LACTULOSE
     Dates: start: 20161008
  14. GRAVOL [Concomitant]
     Active Substance: DIMENHYDRINATE
     Dates: start: 20170104
  15. PROLIA [Concomitant]
     Active Substance: DENOSUMAB
     Dates: start: 2014
  16. VENTOLIN [Concomitant]
     Active Substance: ALBUTEROL SULFATE
     Dates: start: 2006
  17. OLANZAPINE. [Concomitant]
     Active Substance: OLANZAPINE
     Dates: start: 20161011
  18. VITAMIN C [Concomitant]
     Active Substance: ASCORBIC ACID
     Dates: start: 20161212
  19. HYDROMORPHONE [Concomitant]
     Active Substance: HYDROMORPHONE
     Dates: start: 201608
  20. VITAMIN D2 [Concomitant]
     Active Substance: ERGOCALCIFEROL
     Dates: start: 2004
  21. ASPIRIN. [Concomitant]
     Active Substance: ASPIRIN
     Dates: start: 2006
  22. SYSTANE (POLYETHYLENE GLYCOL 400\PROPYLENE GLYCOL) [Concomitant]
     Active Substance: POLYETHYLENE GLYCOL 400\PROPYLENE GLYCOL
     Dates: start: 201511
  23. IMODIUM [Concomitant]
     Active Substance: LOPERAMIDE HYDROCHLORIDE
     Dates: start: 20170407
  24. DURVALUMAB. [Suspect]
     Active Substance: DURVALUMAB
     Indication: NON-SMALL CELL LUNG CANCER
     Route: 042
     Dates: end: 20180305
  25. COVERSYL [Concomitant]
     Active Substance: PERINDOPRIL
     Dates: start: 2006
  26. LUTEIN [Concomitant]
     Active Substance: LUTEIN
     Dates: start: 201511
  27. TYLENOL EXTRA STRENGTH [Concomitant]
     Active Substance: ACETAMINOPHEN
     Dates: start: 20170921
  28. VITAMIN B12 [Concomitant]
     Active Substance: CYANOCOBALAMIN
     Dates: start: 20160921
  29. PROBIOTICS [Concomitant]
     Active Substance: PROBIOTICS NOS
     Dates: start: 20171020
  30. SYSTANE (POLYETHYLENE GLYCOL 400\PROPYLENE GLYCOL) [Concomitant]
     Active Substance: POLYETHYLENE GLYCOL 400\PROPYLENE GLYCOL
     Dates: start: 20170825
  31. TUMS [Concomitant]
     Active Substance: CALCIUM CARBONATE
     Dates: start: 201603

REACTIONS (1)
  - Enterocolitis infectious [Recovering/Resolving]

NARRATIVE: CASE EVENT DATE: 20180315
